FAERS Safety Report 9055477 (Version 4)
Quarter: 2013Q2

REPORT INFORMATION
  Report Type: Report from Study
  Country: AT (occurrence: AT)
  Receive Date: 20130206
  Receipt Date: 20130516
  Transmission Date: 20140414
  Serious: Yes (Hospitalization, Other)
  Sender: FDA-Public Use
  Company Number: AT-ABBOTT-13P-009-1042449-00

PATIENT
  Age: 37 Year
  Sex: Male
  Weight: 68 kg

DRUGS (43)
  1. ZEMPLAR [Suspect]
     Indication: HYPERPARATHYROIDISM SECONDARY
     Dosage: 15 UG PER WEEK
     Route: 042
     Dates: start: 20120207
  2. ZEMPLAR [Suspect]
     Dosage: 20 UG PER WEEK
     Route: 042
     Dates: start: 20120313, end: 20120510
  3. ZEMPLAR [Suspect]
     Dosage: 25 UG PER WEEK
     Route: 042
     Dates: start: 20120510, end: 20120514
  4. ZEMPLAR [Suspect]
     Dosage: 15 UG PER WEEK
     Route: 042
     Dates: start: 20120814, end: 20120921
  5. ZEMPLAR [Suspect]
     Dosage: 20 UG PER WEEK
     Route: 042
     Dates: start: 20120922, end: 20121012
  6. ZEMPLAR [Suspect]
     Dosage: 25 UG PER WEEK
     Route: 042
     Dates: start: 20121013
  7. CPS [Concomitant]
     Indication: PRODUCT USED FOR UNKNOWN INDICATION
     Dosage: 1-0-0 ON DAY WITHOUT HEMODIALY SLS
     Route: 048
     Dates: start: 20111122, end: 20120410
  8. CPS [Concomitant]
     Dosage: 1-0-0 ON DAY WITHOUT HEMODIALY SLS
     Route: 048
     Dates: start: 20120821, end: 20121113
  9. CPS [Concomitant]
     Dosage: 1-0-0 ON DAY WITHOUT HEMODIALY SLS
     Route: 048
     Dates: start: 20121114
  10. FOLSAN [Concomitant]
     Indication: PRODUCT USED FOR UNKNOWN INDICATION
     Route: 048
     Dates: start: 20110728
  11. LASIX [Concomitant]
     Indication: PRODUCT USED FOR UNKNOWN INDICATION
     Dosage: 1/4-1/4-0
     Route: 048
     Dates: start: 20110728, end: 20120421
  12. PANTOLOC [Concomitant]
     Indication: PRODUCT USED FOR UNKNOWN INDICATION
     Dosage: 1-0-0
     Route: 048
     Dates: start: 20110728
  13. RENVELA [Concomitant]
     Indication: PRODUCT USED FOR UNKNOWN INDICATION
     Dosage: 3-3-3
     Route: 048
     Dates: start: 20110728, end: 20120421
  14. RENVELA [Concomitant]
     Dosage: 1-1-1
     Route: 048
     Dates: start: 20120814, end: 20120905
  15. RENVELA [Concomitant]
     Dosage: 2-2-2
     Route: 048
     Dates: start: 20120906
  16. RENVELA [Concomitant]
     Dosage: 3-3-3
     Route: 048
     Dates: start: 20130117
  17. FOSITENS [Concomitant]
     Indication: PRODUCT USED FOR UNKNOWN INDICATION
     Dosage: 1-0-0
     Route: 048
     Dates: start: 20110728, end: 20120508
  18. THROMBO ASS [Concomitant]
     Indication: PRODUCT USED FOR UNKNOWN INDICATION
     Dosage: 0-1-0
     Route: 048
     Dates: start: 20110728, end: 20120414
  19. THROMBO ASS [Concomitant]
     Dosage: 0-1-0
     Route: 048
     Dates: start: 20120522
  20. NORVASC [Concomitant]
     Indication: PRODUCT USED FOR UNKNOWN INDICATION
     Dosage: 1-0-0
     Route: 048
     Dates: start: 20110728, end: 20120421
  21. FERRLECIT [Concomitant]
     Indication: PRODUCT USED FOR UNKNOWN INDICATION
     Dosage: 1X/WEEK
     Route: 042
     Dates: start: 20110728, end: 20120216
  22. FERRLECIT [Concomitant]
     Dosage: 1/2 AMPOULE/WEEK
     Route: 042
     Dates: start: 20120216, end: 20120514
  23. FERRLECIT [Concomitant]
     Dosage: 1X/WEEK
     Route: 042
     Dates: start: 20120809, end: 20121113
  24. FERRLECIT [Concomitant]
     Dosage: 1.5 AMPOULES/WEEK
     Route: 042
     Dates: start: 20121114
  25. NEORECORMON [Concomitant]
     Indication: PRODUCT USED FOR UNKNOWN INDICATION
     Dosage: 10000 IE; 30000 IE/WEEK
     Route: 042
     Dates: start: 20110728, end: 20120912
  26. NEORECORMON [Concomitant]
     Dosage: 10000 IE; 20000 IE/WEEK
     Route: 042
     Dates: start: 20120913
  27. FRAGMIN [Concomitant]
     Indication: PRODUCT USED FOR UNKNOWN INDICATION
     Dosage: 4000 IE; 3X/WEEK BY HEMODIALYSIS
     Route: 042
     Dates: start: 20110728
  28. FOSRENOL [Concomitant]
     Indication: PRODUCT USED FOR UNKNOWN INDICATION
     Dosage: 1-1-1
     Route: 048
     Dates: start: 20111110, end: 20120421
  29. FOSRENOL [Concomitant]
     Dosage: 1-1-1
     Route: 048
     Dates: start: 20120514
  30. APREDNISOLON [Concomitant]
     Indication: PRODUCT USED FOR UNKNOWN INDICATION
     Dosage: 2-0-0
     Route: 048
     Dates: start: 20111027, end: 20120410
  31. AVELOX [Concomitant]
     Indication: PRODUCT USED FOR UNKNOWN INDICATION
     Dosage: 1-0-0
     Route: 048
     Dates: start: 20120228, end: 20120306
  32. ACIVLOVIR [Concomitant]
     Indication: PRODUCT USED FOR UNKNOWN INDICATION
     Dosage: 1-0-1
     Route: 048
     Dates: start: 20120301, end: 20120315
  33. BANEOCIN [Concomitant]
     Indication: PRODUCT USED FOR UNKNOWN INDICATION
     Dates: start: 20120301, end: 20120410
  34. DREISACARB [Concomitant]
     Indication: PRODUCT USED FOR UNKNOWN INDICATION
     Dosage: 1-1-1
     Route: 048
     Dates: start: 20120313, end: 20120421
  35. DREISACARB [Concomitant]
     Dosage: 1-1-1
     Route: 048
     Dates: start: 20120514, end: 20120618
  36. DREISACARB [Concomitant]
     Dosage: 2-2-2
     Route: 048
     Dates: start: 20120713
  37. OLEOVIT D3 [Concomitant]
     Indication: PRODUCT USED FOR UNKNOWN INDICATION
     Dosage: 20 GTT/WEEK
     Route: 048
     Dates: start: 20120412
  38. CONCOR COR [Concomitant]
     Indication: PRODUCT USED FOR UNKNOWN INDICATION
     Dosage: 1/2-0-0
     Route: 048
     Dates: start: 20120507, end: 20120815
  39. BLOPRESS [Concomitant]
     Indication: PRODUCT USED FOR UNKNOWN INDICATION
     Dosage: 1-0-1
     Route: 048
     Dates: start: 20120509, end: 20120820
  40. BLOPRESS [Concomitant]
     Dosage: 1/2-0-1/2
     Route: 048
     Dates: start: 20120821
  41. BLOPRESS [Concomitant]
     Dosage: 1/2-0-1/2
     Route: 048
     Dates: start: 20130129
  42. ZOLDEM [Concomitant]
     Indication: PRODUCT USED FOR UNKNOWN INDICATION
     Dosage: 0-0-1
     Route: 048
     Dates: start: 20120522
  43. CONCOR [Concomitant]
     Indication: PRODUCT USED FOR UNKNOWN INDICATION
     Dosage: 1/2-0-0
     Route: 048
     Dates: start: 20120816

REACTIONS (15)
  - Cardiac failure [Recovered/Resolved]
  - Left ventricular dysfunction [Recovered/Resolved]
  - Pneumonia [Recovered/Resolved]
  - Mitral valve incompetence [Recovered/Resolved]
  - Respiratory tract infection [Recovered/Resolved]
  - Oral herpes [Recovered/Resolved]
  - Decreased appetite [Recovered/Resolved]
  - Hyperphosphataemia [Recovered/Resolved]
  - Weight decreased [Recovered/Resolved]
  - Fatigue [Not Recovered/Not Resolved]
  - Pruritus [Not Recovered/Not Resolved]
  - Bone pain [Not Recovered/Not Resolved]
  - Impaired work ability [Not Recovered/Not Resolved]
  - Blood culture positive [Unknown]
  - Haemorrhoids [Unknown]
